FAERS Safety Report 4688041-0 (Version None)
Quarter: 2005Q2

REPORT INFORMATION
  Report Type: 
  Country: None (occurrence: None)
  Receive Date: 20050610
  Receipt Date: 20050203
  Transmission Date: 20051028
  Serious: Yes (Other)
  Sender: FDA-Public Use
  Company Number: JP-ROCHE-395233

PATIENT
  Age: 28 Year
  Sex: Female

DRUGS (2)
  1. ROCEPHIN [Suspect]
     Indication: TONSILLITIS
     Route: 041
     Dates: start: 20050203, end: 20050203
  2. PANSPORIN T [Concomitant]
     Indication: INFLAMMATION
     Route: 048
     Dates: start: 20050203, end: 20050203

REACTIONS (5)
  - ANAPHYLACTIC REACTION [None]
  - FEELING HOT [None]
  - FLUSHING [None]
  - HEADACHE [None]
  - INFLAMMATION [None]
